FAERS Safety Report 24245732 (Version 1)
Quarter: 2024Q3

REPORT INFORMATION
  Report Type: Spontaneous
  Country: IN (occurrence: IN)
  Receive Date: 20240824
  Receipt Date: 20240824
  Transmission Date: 20241016
  Serious: Yes (Other)
  Sender: ZYDUS PHARM
  Company Number: IN-CADILA HEALTHCARE LIMITED-IN-ZYDUS-111446

PATIENT

DRUGS (3)
  1. TAMOXIFEN [Suspect]
     Active Substance: TAMOXIFEN
     Indication: Desmoid tumour
     Dosage: 40 MILLIGRAM/SQ. METER, IN TWO DIVIDED DOSES ONCE DAILY
     Route: 048
  2. METHOTREXATE [Suspect]
     Active Substance: METHOTREXATE
     Indication: Desmoid tumour
     Dosage: 35 MILLILITRE PER SQUARE METRE, ONCE A WEEK
     Route: 042
  3. VINBLASTINE [Suspect]
     Active Substance: VINBLASTINE
     Indication: Desmoid tumour
     Dosage: 6 MILLILITRE PER SQUARE METRE, ONCE A WEEK
     Route: 042

REACTIONS (1)
  - Neutropenic colitis [Unknown]
